FAERS Safety Report 8080614-0 (Version None)
Quarter: 2012Q1

REPORT INFORMATION
  Report Type: 
  Country: None (occurrence: None)
  Receive Date: 20120130
  Receipt Date: 20120123
  Transmission Date: 20120608
  Serious: Yes (Hospitalization)
  Sender: FDA-Public Use
  Company Number: FR-BAYER-2011-048094

PATIENT
  Age: 64 Year
  Sex: Female

DRUGS (5)
  1. TARGOCID [Suspect]
     Dosage: 400 MG, BID
     Route: 042
     Dates: start: 20110304, end: 20110305
  2. PIPERACILLIN/TAZOBACTAM [Suspect]
     Dosage: 4 G, TID
     Route: 042
     Dates: start: 20110304, end: 20110406
  3. CIPROFLOXACIN [Suspect]
     Dosage: 500 MG, BID
     Route: 048
     Dates: start: 20110330, end: 20110403
  4. MYCOPHENOLATE MOFETIL (CELLCEPT) [Concomitant]
     Dosage: 500 MG, BID
     Route: 048
  5. TARGOCID [Suspect]
     Dosage: 400 MG, QD
     Route: 042
     Dates: start: 20110305, end: 20110407

REACTIONS (1)
  - DRUG RASH WITH EOSINOPHILIA AND SYSTEMIC SYMPTOMS [None]
